FAERS Safety Report 9379797 (Version 1)
Quarter: 2013Q3

REPORT INFORMATION
  Report Type: Spontaneous
  Country: US (occurrence: None)
  Receive Date: 20130701
  Receipt Date: 20130701
  Transmission Date: 20140515
  Serious: Yes (Hospitalization)
  Sender: FDA-Public Use
  Company Number: None

PATIENT
  Age: 24 Year
  Sex: 0

DRUGS (2)
  1. SINGULAIR [Suspect]
     Indication: ASTHMA
     Route: 048
     Dates: start: 20130606
  2. SINGULAIR [Suspect]
     Indication: MULTIPLE ALLERGIES
     Route: 048
     Dates: start: 20130606

REACTIONS (13)
  - Urticaria [None]
  - Rash [None]
  - Ear pain [None]
  - Nausea [None]
  - Dyspnoea [None]
  - Chest discomfort [None]
  - Dysphagia [None]
  - Dysphonia [None]
  - Asthma [None]
  - Oedema mouth [None]
  - Swelling face [None]
  - Pharyngeal oedema [None]
  - Pruritus [None]
